FAERS Safety Report 7519297-4 (Version None)
Quarter: 2011Q2

REPORT INFORMATION
  Report Type: 
  Country: None (occurrence: None)
  Receive Date: 20110602
  Receipt Date: 20110601
  Transmission Date: 20111010
  Serious: Yes (Life-Threatening, Disabling, Other)
  Sender: FDA-Public Use
  Company Number: US-B.I. PHARMACEUTICALS,INC./RIDGEFIELD-2011-BP-08948BP

PATIENT
  Age: 83 Year
  Sex: Female

DRUGS (11)
  1. PRADAXA [Suspect]
     Indication: ATRIAL FIBRILLATION
     Dosage: 300 MG
     Dates: end: 20110202
  2. FISH OIL [Concomitant]
     Route: 048
  3. PRAVACHOL [Concomitant]
     Route: 048
  4. OMEPRAZOLE [Concomitant]
     Dosage: 40 MG
     Route: 048
  5. ACTONEL [Concomitant]
     Route: 048
  6. CALCIUM CARBONATE [Concomitant]
     Dosage: 1000 MG
     Route: 048
  7. ASPIRIN [Concomitant]
     Dosage: 81 MG
     Route: 048
  8. VICODIN [Concomitant]
     Route: 048
  9. BENAZAPRIL [Concomitant]
     Route: 048
  10. AMIODARONE HCL [Concomitant]
     Dosage: 400 MG
     Route: 048
  11. MULTI-VITAMIN [Concomitant]
     Route: 048

REACTIONS (1)
  - HAEMORRHAGE INTRACRANIAL [None]
